FAERS Safety Report 11305862 (Version 2)
Quarter: 2015Q4

REPORT INFORMATION
  Report Type: Spontaneous
  Country: FR (occurrence: FR)
  Receive Date: 20150723
  Receipt Date: 20151231
  Transmission Date: 20160304
  Serious: Yes (Life-Threatening, Hospitalization, Other)
  Sender: FDA-Public Use
  Company Number: FR-PFIZER INC-2015240728

PATIENT
  Age: 48 Year
  Sex: Female
  Weight: 70 kg

DRUGS (17)
  1. ALDACTONE [Suspect]
     Active Substance: SPIRONOLACTONE
     Dosage: 50 MG, 1X/DAY
     Route: 048
     Dates: start: 201506
  2. PARACETAMOL [Suspect]
     Active Substance: ACETAMINOPHEN
     Dosage: 16 G, SINGLE
     Route: 048
     Dates: start: 20150616, end: 20150616
  3. NIZORAL [Concomitant]
     Active Substance: KETOCONAZOLE
     Indication: HYPERADRENOCORTICISM
     Dosage: 400 MG, 3X/DAY
     Dates: start: 201312
  4. ALDACTONE [Suspect]
     Active Substance: SPIRONOLACTONE
     Dosage: 2.25 G, SINGLE
     Route: 048
     Dates: start: 20150616, end: 20150616
  5. LEVOTHYROX [Concomitant]
     Active Substance: LEVOTHYROXINE
     Dosage: 125 ?G, UNK
  6. DOSTINEX [Concomitant]
     Active Substance: CABERGOLINE
     Dosage: UNK
     Dates: start: 201503
  7. LYSODREN [Suspect]
     Active Substance: MITOTANE
     Indication: ADRENOCORTICAL CARCINOMA
     Dosage: 9 DF, UNK
     Route: 048
     Dates: start: 201505
  8. XANAX [Concomitant]
     Active Substance: ALPRAZOLAM
     Dosage: 15 MG, SINGLE
     Route: 048
     Dates: start: 20150616, end: 20150616
  9. LYSODREN [Suspect]
     Active Substance: MITOTANE
     Dosage: 100 G, SINGLE
     Route: 048
     Dates: start: 20150616, end: 20150616
  10. METOPIRONE [Suspect]
     Active Substance: METYRAPONE
     Dosage: 25 G, SINGLE
     Route: 048
     Dates: start: 20150616, end: 20150616
  11. NIZORAL [Concomitant]
     Active Substance: KETOCONAZOLE
     Dosage: UNK
     Dates: start: 201503
  12. ALDACTONE [Suspect]
     Active Substance: SPIRONOLACTONE
     Dosage: UNK
     Route: 048
     Dates: start: 20150618
  13. TEMERIT [Concomitant]
     Active Substance: NEBIVOLOL
     Dosage: 10 MG, DAILY
  14. LYSODREN [Suspect]
     Active Substance: MITOTANE
     Dosage: 3 DF, DAILY
  15. METOPIRONE [Suspect]
     Active Substance: METYRAPONE
     Dosage: 9 DF, UNK
     Route: 048
     Dates: start: 201505
  16. XANAX [Concomitant]
     Active Substance: ALPRAZOLAM
     Dosage: 6 DF, DAILY (IF NEEDED)
     Route: 048
  17. DOSTINEX [Concomitant]
     Active Substance: CABERGOLINE
     Dosage: 0.5 MG, DAILY
     Dates: start: 201405

REACTIONS (6)
  - Malaise [Recovered/Resolved]
  - Intentional overdose [Unknown]
  - Adrenocortical insufficiency acute [Recovering/Resolving]
  - Suicide attempt [Recovered/Resolved]
  - Hypotension [Recovering/Resolving]
  - Abdominal pain [Recovered/Resolved]

NARRATIVE: CASE EVENT DATE: 20150616
